FAERS Safety Report 13638237 (Version 3)
Quarter: 2022Q2

REPORT INFORMATION
  Report Type: Spontaneous
  Country: IT (occurrence: IT)
  Receive Date: 20170609
  Receipt Date: 20220505
  Transmission Date: 20220720
  Serious: Yes (Other)
  Sender: FDA-Public Use
  Company Number: IT-APOPHARMA-2017AP012616

PATIENT
  Age: 55 Year
  Sex: Female

DRUGS (7)
  1. FERRIPROX [Suspect]
     Active Substance: DEFERIPRONE
     Indication: Thalassaemia
     Dosage: 3500 MILLIGRAM, QD
     Route: 048
     Dates: start: 20031014, end: 20170522
  2. FERRIPROX [Suspect]
     Active Substance: DEFERIPRONE
     Indication: Iron overload
  3. SOTALOL [Suspect]
     Active Substance: SOTALOL
     Indication: Atrial fibrillation
     Dosage: 240 MILLIGRAM, QD
     Route: 048
     Dates: start: 20100504, end: 20170522
  4. LASIX [Suspect]
     Active Substance: FUROSEMIDE
     Indication: Atrial fibrillation
     Dosage: 12.5 MILLIGRAM, QD
     Route: 065
     Dates: start: 20100504, end: 20170522
  5. ASPIRIN [Concomitant]
     Active Substance: ASPIRIN
     Indication: Product used for unknown indication
     Dosage: 100 MILLIGRAM
     Route: 048
     Dates: start: 20091222, end: 20170522
  6. GLUCOBAY [Concomitant]
     Active Substance: ACARBOSE
     Indication: Product used for unknown indication
     Dosage: 300 MILLIGRAM
     Route: 048
     Dates: start: 20040221, end: 20170522
  7. GLUCOBAY [Concomitant]
     Active Substance: ACARBOSE
     Dosage: 300 MILLIGRAM
     Route: 048
     Dates: start: 20040221, end: 20170522

REACTIONS (1)
  - Renal failure [Unknown]

NARRATIVE: CASE EVENT DATE: 20170207
